FAERS Safety Report 6882098-4 (Version None)
Quarter: 2010Q3

REPORT INFORMATION
  Report Type: 
  Country: None (occurrence: None)
  Receive Date: 20100729
  Receipt Date: 20100721
  Transmission Date: 20110219
  Serious: Yes (Other)
  Sender: FDA-Public Use
  Company Number: IE-BAXTER-2010BH005811

PATIENT
  Age: 14 Year
  Weight: 57 kg

DRUGS (37)
  1. GAMMAGARD LIQUID [Suspect]
     Indication: NEUTROPENIA
     Route: 042
     Dates: start: 20100206, end: 20100206
  2. GAMMAGARD LIQUID [Suspect]
     Indication: SEPSIS
     Route: 042
     Dates: start: 20100206, end: 20100206
  3. GAMMAGARD LIQUID [Suspect]
     Indication: BLOOD PRODUCT TRANSFUSION DEPENDENT
     Route: 042
     Dates: start: 20100206, end: 20100206
  4. GAMMAGARD LIQUID [Suspect]
     Route: 042
     Dates: start: 20100206, end: 20100206
  5. GAMMAGARD LIQUID [Suspect]
     Route: 042
     Dates: start: 20100206, end: 20100206
  6. GAMMAGARD LIQUID [Suspect]
     Route: 042
     Dates: start: 20100206, end: 20100206
  7. GAMMAGARD LIQUID [Suspect]
     Route: 042
     Dates: start: 20100207, end: 20100208
  8. GAMMAGARD LIQUID [Suspect]
     Route: 042
     Dates: start: 20100207, end: 20100208
  9. GAMMAGARD LIQUID [Suspect]
     Route: 042
     Dates: start: 20100207, end: 20100208
  10. GAMMAGARD LIQUID [Suspect]
     Route: 042
     Dates: start: 20100208, end: 20100209
  11. GAMMAGARD LIQUID [Suspect]
     Route: 042
     Dates: start: 20100208, end: 20100209
  12. GAMMAGARD LIQUID [Suspect]
     Route: 042
     Dates: start: 20100208, end: 20100209
  13. GAMMAGARD LIQUID [Suspect]
     Route: 042
     Dates: start: 20100208, end: 20100209
  14. GAMMAGARD LIQUID [Suspect]
     Route: 042
     Dates: start: 20100208, end: 20100209
  15. GAMMAGARD LIQUID [Suspect]
     Route: 042
     Dates: start: 20100208, end: 20100209
  16. GAMMAGARD LIQUID [Suspect]
     Route: 042
     Dates: start: 20100208, end: 20100209
  17. GAMMAGARD LIQUID [Suspect]
     Route: 042
     Dates: start: 20100208, end: 20100209
  18. GAMMAGARD LIQUID [Suspect]
     Route: 042
     Dates: start: 20100208, end: 20100209
  19. GAMMAGARD LIQUID [Suspect]
     Route: 042
     Dates: start: 20100209, end: 20100210
  20. GAMMAGARD LIQUID [Suspect]
     Route: 042
     Dates: start: 20100209, end: 20100210
  21. GAMMAGARD LIQUID [Suspect]
     Route: 042
     Dates: start: 20100209, end: 20100210
  22. GAMMAGARD LIQUID [Suspect]
     Route: 042
     Dates: start: 20100209, end: 20100210
  23. GAMMAGARD LIQUID [Suspect]
     Route: 042
     Dates: start: 20100209, end: 20100210
  24. GAMMAGARD LIQUID [Suspect]
     Route: 042
     Dates: start: 20100209, end: 20100210
  25. GAMMAGARD LIQUID [Suspect]
     Route: 042
     Dates: start: 20100209, end: 20100210
  26. GAMMAGARD LIQUID [Suspect]
     Route: 042
     Dates: start: 20100209, end: 20100210
  27. GAMMAGARD LIQUID [Suspect]
     Route: 042
     Dates: start: 20100209, end: 20100210
  28. GAMMAGARD LIQUID [Suspect]
     Route: 042
     Dates: start: 20100209, end: 20100210
  29. GAMMAGARD LIQUID [Suspect]
     Route: 042
     Dates: start: 20100209, end: 20100210
  30. GAMMAGARD LIQUID [Suspect]
     Route: 042
     Dates: start: 20100209, end: 20100210
  31. VANCOMYCIN [Concomitant]
     Route: 042
     Dates: start: 20100206
  32. MEROPENEM [Concomitant]
     Route: 042
     Dates: start: 20100206
  33. VECURONIUM BROMIDE [Concomitant]
     Route: 042
     Dates: start: 20100206
  34. COTRIM [Concomitant]
     Route: 042
     Dates: start: 20100207
  35. HYDROCORTISONE [Concomitant]
     Route: 042
     Dates: start: 20100207
  36. GRANULOCYTE COLONY STIMULATING FACTOR [Concomitant]
     Route: 042
     Dates: start: 20100206
  37. HYDRALAZINE HCL [Concomitant]
     Route: 042
     Dates: start: 20100207

REACTIONS (1)
  - ANTI-ERYTHROCYTE ANTIBODY POSITIVE [None]
